FAERS Safety Report 23067492 (Version 1)
Quarter: 2023Q4

REPORT INFORMATION
  Report Type: Spontaneous
  Country: US (occurrence: US)
  Receive Date: 20231016
  Receipt Date: 20231016
  Transmission Date: 20240110
  Serious: Yes (Hospitalization, Other)
  Sender: FDA-Public Use
  Company Number: US-NOVOPROD-1124532

PATIENT
  Age: 78 Year
  Sex: Female

DRUGS (3)
  1. LEVEMIR [Suspect]
     Active Substance: INSULIN DETEMIR
     Indication: Steroid diabetes
     Dosage: UNK
     Route: 058
     Dates: start: 2013
  2. LEVEMIR [Suspect]
     Active Substance: INSULIN DETEMIR
     Indication: Type 2 diabetes mellitus
  3. LEVEMIR [Suspect]
     Active Substance: INSULIN DETEMIR
     Indication: Steroid diabetes
     Dosage: 10-15 UNITS A DAY
     Route: 058

REACTIONS (8)
  - Lung disorder [Recovering/Resolving]
  - Condition aggravated [Recovering/Resolving]
  - Lung disorder [Recovering/Resolving]
  - Condition aggravated [Recovering/Resolving]
  - Hip arthroplasty [Recovered/Resolved]
  - Transfusion [Recovered/Resolved]
  - Cataract [Unknown]
  - Haemoglobin abnormal [Unknown]

NARRATIVE: CASE EVENT DATE: 20200101
